FAERS Safety Report 6018328-0 (Version None)
Quarter: 2008Q4

REPORT INFORMATION
  Report Type: 
  Country: None (occurrence: None)
  Receive Date: 20081217
  Receipt Date: 20081002
  Transmission Date: 20090506
  Serious: No
  Sender: FDA-Public Use
  Company Number: US-WYE-H06242208

PATIENT
  Age: 57 Year
  Sex: Male
  Weight: 92.62 kg

DRUGS (2)
  1. TORISEL [Suspect]
     Indication: RENAL CELL CARCINOMA
     Dosage: FIVE DOSES, INTRAVENOUS
     Route: 042
  2. BISOPROLOL FUMARATE [Concomitant]

REACTIONS (4)
  - GLOSSODYNIA [None]
  - ORAL PAIN [None]
  - STOMATITIS [None]
  - TONGUE DISORDER [None]
